FAERS Safety Report 4893196-9 (Version None)
Quarter: 2005Q4

REPORT INFORMATION
  Report Type: 
  Country: None (occurrence: None)
  Receive Date: 20051223
  Receipt Date: 20050929
  Transmission Date: 20060501
  Serious: No
  Sender: FDA-Public Use
  Company Number: 2005PV002628

PATIENT
  Age: 50 Year
  Sex: Female
  Weight: 63.5036 kg

DRUGS (5)
  1. SYMLIN [Suspect]
     Indication: DIABETES MELLITUS INSULIN-DEPENDENT
     Dosage: 60 MCG;TID;SC
     Route: 058
     Dates: start: 20050901
  2. HUMULIN N [Concomitant]
  3. HUMALOG [Concomitant]
  4. THYROID TAB [Concomitant]
  5. LANTUS [Concomitant]

REACTIONS (4)
  - BLOOD GLUCOSE INCREASED [None]
  - FEELING ABNORMAL [None]
  - NAUSEA [None]
  - VOMITING [None]
